FAERS Safety Report 16597292 (Version 1)
Quarter: 2019Q3

REPORT INFORMATION
  Report Type: Spontaneous
  Country: FR (occurrence: FR)
  Receive Date: 20190719
  Receipt Date: 20190719
  Transmission Date: 20191004
  Serious: Yes (Other)
  Sender: FDA-Public Use
  Company Number: FR-TEVA-2019-FR-1079302

PATIENT
  Age: 66 Year
  Sex: Male
  Weight: 58 kg

DRUGS (3)
  1. AVASTIN [Suspect]
     Active Substance: BEVACIZUMAB
     Indication: PLEURAL MESOTHELIOMA MALIGNANT
     Dosage: 870MILLIGRAM, 3 WEEKS
     Route: 041
     Dates: start: 20121115, end: 20130314
  2. ALIMTA [Suspect]
     Active Substance: PEMETREXED DISODIUM
     Indication: PLEURAL MESOTHELIOMA MALIGNANT
     Dosage: 800 MILLIGRAM, 1 WEEKS
     Route: 041
     Dates: start: 20121115, end: 20130314
  3. CISPLATINE [Suspect]
     Active Substance: CISPLATIN
     Indication: PLEURAL MESOTHELIOMA MALIGNANT
     Dosage: 115 MILLIGRAM, 3 WEEKS
     Route: 041
     Dates: start: 20121115, end: 20130314

REACTIONS (2)
  - Hypertension [Recovered/Resolved]
  - Neutropenia [Recovered/Resolved]

NARRATIVE: CASE EVENT DATE: 20130117
